FAERS Safety Report 16983579 (Version 1)
Quarter: 2019Q4

REPORT INFORMATION
  Report Type: Spontaneous
  Country: BE (occurrence: BE)
  Receive Date: 20191101
  Receipt Date: 20191101
  Transmission Date: 20200122
  Serious: Yes (Other)
  Sender: FDA-Public Use
  Company Number: BE-JNJFOC-20191040857

PATIENT
  Age: 1 Year
  Weight: 14 kg

DRUGS (1)
  1. DUROGESIC [Suspect]
     Active Substance: FENTANYL
     Indication: PRODUCT USED FOR UNKNOWN INDICATION
     Route: 062

REACTIONS (7)
  - Respiratory arrest [Unknown]
  - Dyspnoea [Unknown]
  - Bradypnoea [Unknown]
  - Apnoea [Unknown]
  - Product use issue [Unknown]
  - Vomiting [Unknown]
  - Off label use [Unknown]
